FAERS Safety Report 4731330-1 (Version None)
Quarter: 2005Q3

REPORT INFORMATION
  Report Type: 
  Country: None (occurrence: None)
  Receive Date: 20050719
  Receipt Date: 20050217
  Transmission Date: 20060218
  Serious: Yes (Other)
  Sender: FDA-Public Use
  Company Number: 2005BI003746

PATIENT
  Age: 36 Year
  Sex: Female
  Weight: 49.8957 kg

DRUGS (11)
  1. AVONEX [Suspect]
     Indication: MULTIPLE SCLEROSIS
     Dosage: 30 UG;QW;IM
     Dates: start: 20020909
  2. PROVIGIL [Concomitant]
  3. BEXTRA [Concomitant]
  4. BACLOFEN [Concomitant]
  5. AMANTADINE [Concomitant]
  6. LEXAPRO [Concomitant]
  7. TYLENOL W/ CODEINE [Concomitant]
  8. EXCEDRIN (MIGRAINE) [Concomitant]
  9. AMBIEN [Concomitant]
  10. VALIUM [Concomitant]
  11. NEURONTIN [Concomitant]

REACTIONS (5)
  - ANXIETY [None]
  - CONVULSION [None]
  - INFLUENZA [None]
  - MEMORY IMPAIRMENT [None]
  - NERVOUS SYSTEM DISORDER [None]
